FAERS Safety Report 7281437-2 (Version None)
Quarter: 2011Q1

REPORT INFORMATION
  Report Type: 
  Country: None (occurrence: None)
  Receive Date: 20110203
  Receipt Date: 20110203
  Transmission Date: 20110831
  Serious: Yes (Other)
  Sender: FDA-Public Use
  Company Number: None

PATIENT
  Age: 44 Year
  Sex: Female

DRUGS (2)
  1. CHLPROMAZINE [Concomitant]
  2. CHLORPROMAZINE [Suspect]
     Dosage: 100MG ONCE IM
     Route: 030
     Dates: start: 20110201, end: 20110201

REACTIONS (1)
  - HYPOTENSION [None]
